FAERS Safety Report 8252496-5 (Version None)
Quarter: 2012Q2

REPORT INFORMATION
  Report Type: 
  Country: None (occurrence: None)
  Receive Date: 20120402
  Receipt Date: 20111017
  Transmission Date: 20120825
  Serious: No
  Sender: FDA-Public Use
  Company Number: US-ABBOTT-11P-163-0867101-00

PATIENT
  Age: 64 Year
  Sex: Male
  Weight: 88.53 kg

DRUGS (6)
  1. UNKNOWN HIGH BLOOD PRESSURE MEDICATION [Concomitant]
     Indication: HYPERTENSION
  2. ANDROGEL [Suspect]
     Indication: BLOOD TESTOSTERONE DECREASED
     Route: 061
     Dates: start: 20111001
  3. TEMAZEPAM [Concomitant]
     Indication: INSOMNIA
  4. OMNERIS [Concomitant]
     Indication: PRODUCT USED FOR UNKNOWN INDICATION
  5. ANDROGEL [Suspect]
     Indication: BLOOD TESTOSTERONE DECREASED
     Dosage: 1 PACKET DAILY
     Route: 061
     Dates: start: 20110801, end: 20111001
  6. PHENTERMINE [Concomitant]
     Indication: PRODUCT USED FOR UNKNOWN INDICATION
     Dates: end: 20111001

REACTIONS (2)
  - DRUG INEFFECTIVE [None]
  - FATIGUE [None]
